FAERS Safety Report 8893143 (Version 1)
Quarter: 2012Q4

REPORT INFORMATION
  Report Type: 
  Country: US (occurrence: US)
  Receive Date: 20121107
  Receipt Date: 20121107
  Transmission Date: 20130627
  Serious: No
  Sender: FDA-Public Use
  Company Number: US-AMGEN-USASP2011053902

PATIENT
  Age: 9 Year
  Sex: Female

DRUGS (1)
  1. ENBREL [Suspect]
     Indication: OSTEOMYELITIS
     Dosage: 25 mg, qwk
     Dates: start: 20110812

REACTIONS (3)
  - Skin burning sensation [Recovered/Resolved]
  - Urticaria [Recovered/Resolved]
  - Pruritus generalised [Recovered/Resolved]
